FAERS Safety Report 7638805-6 (Version None)
Quarter: 2011Q3

REPORT INFORMATION
  Report Type: 
  Country: None (occurrence: None)
  Receive Date: 20110727
  Receipt Date: 20110713
  Transmission Date: 20111222
  Serious: Yes (Death, Hospitalization, Other)
  Sender: FDA-Public Use
  Company Number: US-ELI_LILLY_AND_COMPANY-US201003005301

PATIENT
  Sex: Female

DRUGS (8)
  1. XANAX [Concomitant]
     Indication: ANXIETY
     Dosage: UNK, AS NEEDED
  2. NORCO [Concomitant]
     Indication: PAIN
  3. BRIMONIDINE TARTRATE [Concomitant]
     Dosage: 15 MG, 3/D
  4. FORTEO [Suspect]
     Indication: OSTEOPOROSIS
     Dosage: 20 UG, DAILY (1/D)
     Route: 065
  5. TYLENOL (CAPLET) [Concomitant]
     Dosage: 2 D/F, AS NEEDED AT BEDTIME
  6. CENTRUM [Concomitant]
     Dosage: UNK, DAILY (1/D)
  7. PAXIL [Concomitant]
     Dosage: UNK, EACH MORNING
  8. TRAVATAN [Concomitant]
     Dosage: UNK, EACH EVENING

REACTIONS (8)
  - DRUG DOSE OMISSION [None]
  - DEATH [None]
  - MALAISE [None]
  - DIZZINESS [None]
  - LACERATION [None]
  - HIP FRACTURE [None]
  - FALL [None]
  - FATIGUE [None]
